FAERS Safety Report 8425752-5 (Version None)
Quarter: 2012Q2

REPORT INFORMATION
  Report Type: 
  Country: None (occurrence: None)
  Receive Date: 20120605
  Receipt Date: 20120529
  Transmission Date: 20120825
  Serious: Yes (Other)
  Sender: FDA-Public Use
  Company Number: 2012-002026

PATIENT
  Age: 60 Year
  Sex: Male

DRUGS (3)
  1. ACTONEL [Suspect]
     Dosage: 1 DOSE FORM, ONCE, ORAL
     Route: 048
  2. CHLOROTHIAZIDE [Concomitant]
  3. NORVASC [Concomitant]

REACTIONS (6)
  - ABDOMINAL DISCOMFORT [None]
  - DYSPNOEA [None]
  - DIZZINESS [None]
  - NAUSEA [None]
  - PYREXIA [None]
  - PALPITATIONS [None]
